FAERS Safety Report 5393713-9 (Version None)
Quarter: 2007Q3

REPORT INFORMATION
  Report Type: 
  Country: None (occurrence: None)
  Receive Date: 20070719
  Receipt Date: 20070719
  Transmission Date: 20080115
  Serious: Yes (Hospitalization)
  Sender: FDA-Public Use
  Company Number: None

PATIENT
  Age: 56 Year
  Sex: Male

DRUGS (1)
  1. VALSARTAN [Suspect]
     Indication: HYPERTENSION
     Dosage: 160MG EVERY DAY PO
     Route: 048
     Dates: start: 20070606, end: 20070711

REACTIONS (1)
  - HYPERKALAEMIA [None]
